FAERS Safety Report 10528881 (Version 2)
Quarter: 2015Q4

REPORT INFORMATION
  Report Type: Spontaneous
  Country: MX (occurrence: MX)
  Receive Date: 20141020
  Receipt Date: 20151110
  Transmission Date: 20160304
  Serious: No
  Sender: FDA-Public Use
  Company Number: MX-KOWA-2014S1001360

PATIENT
  Age: 57 Year
  Sex: Female

DRUGS (2)
  1. REDEVANT (PITAVASTATIN) [Suspect]
     Active Substance: PITAVASTATIN
     Dosage: 4 MG, QD
     Route: 048
  2. VITAMINS NOS [Concomitant]
     Active Substance: VITAMINS
     Dosage: UNK, UNK
     Route: 065

REACTIONS (1)
  - Feeling abnormal [Recovered/Resolved]
